FAERS Safety Report 21019138 (Version 1)
Quarter: 2022Q2

REPORT INFORMATION
  Report Type: Report from Study
  Country: US (occurrence: US)
  Receive Date: 20220628
  Receipt Date: 20220628
  Transmission Date: 20220720
  Serious: Yes (Other)
  Sender: FDA-Public Use
  Company Number: US-JAZZ-2022-US-007200

PATIENT
  Sex: Male

DRUGS (5)
  1. XYREM [Suspect]
     Active Substance: SODIUM OXYBATE
     Indication: Myoclonus
     Dosage: 1 GRAM, BID
     Route: 048
     Dates: start: 201701, end: 201703
  2. XYREM [Suspect]
     Active Substance: SODIUM OXYBATE
     Dosage: 3 GRAM, BID
     Route: 048
     Dates: start: 201703
  3. METHENAMINE HIPPURATE [Concomitant]
     Active Substance: METHENAMINE HIPPURATE
     Dosage: UNK
     Dates: start: 20220221
  4. MELOXICAM [Concomitant]
     Active Substance: MELOXICAM
     Dosage: UNK
     Dates: start: 20220121
  5. BENEFIBER [Concomitant]
     Active Substance: STARCH, WHEAT
     Dosage: UNK
     Dates: start: 20220207

REACTIONS (4)
  - Coma [Unknown]
  - Tremor [Unknown]
  - Product administration interrupted [Unknown]
  - Off label use [Unknown]
